FAERS Safety Report 14996893 (Version 1)
Quarter: 2018Q2

REPORT INFORMATION
  Report Type: Spontaneous
  Country: AU (occurrence: AU)
  Receive Date: 20180522
  Receipt Date: 20180522
  Transmission Date: 20180711
  Serious: Yes (Other)
  Sender: FDA-Public Use
  Company Number: None

PATIENT
  Age: 32 Month
  Sex: Female
  Weight: 20 kg

DRUGS (3)
  1. SINGULAIR [Suspect]
     Active Substance: MONTELUKAST SODIUM
     Indication: ASTHMA
  2. VENTOLIN [Concomitant]
     Active Substance: ALBUTEROL SULFATE
  3. FLIXATIDE [Concomitant]

REACTIONS (5)
  - Mood altered [None]
  - Anger [None]
  - Abnormal behaviour [None]
  - Aggression [None]
  - Tremor [None]

NARRATIVE: CASE EVENT DATE: 20150501
